FAERS Safety Report 4666334-0 (Version None)
Quarter: 2005Q2

REPORT INFORMATION
  Report Type: 
  Country: None (occurrence: None)
  Receive Date: 20050519
  Receipt Date: 20050512
  Transmission Date: 20051028
  Serious: Yes (Hospitalization)
  Sender: FDA-Public Use
  Company Number: PHRM2005FR01529

PATIENT
  Age: 6 Day
  Sex: Female
  Weight: 3 kg

DRUGS (1)
  1. METHERGINE [Suspect]
     Dosage: 0.13 MG, ONCE/SINGLE
     Route: 048
     Dates: start: 20050323, end: 20050323

REACTIONS (3)
  - ACCIDENTAL EXPOSURE [None]
  - MEDICATION ERROR [None]
  - RETCHING [None]
